FAERS Safety Report 7492825-3 (Version None)
Quarter: 2011Q2

REPORT INFORMATION
  Report Type: 
  Country: None (occurrence: None)
  Receive Date: 20110520
  Receipt Date: 20110505
  Transmission Date: 20111010
  Serious: Yes (Other)
  Sender: FDA-Public Use
  Company Number: GB-AMGEN-GBRCT2010001673

PATIENT
  Age: 70 Year
  Sex: Male

DRUGS (6)
  1. ATENOLOL [Concomitant]
     Dosage: UNKNOWN
  2. OMEPRAZOLE [Concomitant]
     Dosage: UNKNOWN
  3. ENBREL [Suspect]
     Indication: RHEUMATOID ARTHRITIS
     Dosage: 25 MG, 2 TIMES/WK
     Route: 058
     Dates: start: 20030815, end: 20080101
  4. NABUMETONE [Concomitant]
     Dosage: UNKNOWN
  5. LEFLUNOMIDE [Concomitant]
     Dosage: UNKNOWN
  6. METHOTREXATE [Concomitant]
     Dosage: UNKNOWN

REACTIONS (1)
  - LIP NEOPLASM MALIGNANT STAGE UNSPECIFIED [None]
